FAERS Safety Report 25072308 (Version 2)
Quarter: 2025Q3

REPORT INFORMATION
  Report Type: Spontaneous
  Country: US (occurrence: US)
  Receive Date: 20250313
  Receipt Date: 20250810
  Transmission Date: 20251021
  Serious: No
  Sender: ALEXION PHARMACEUTICALS
  Company Number: US-AstraZeneca-CH-00823002A

PATIENT
  Sex: Female

DRUGS (1)
  1. FARXIGA [Suspect]
     Active Substance: DAPAGLIFLOZIN PROPANEDIOL
     Route: 065

REACTIONS (15)
  - Abdominal pain upper [Unknown]
  - Urinary tract infection [Unknown]
  - Fungal infection [Unknown]
  - Dyspnoea [Unknown]
  - Insomnia [Unknown]
  - Dehydration [Unknown]
  - Depression [Unknown]
  - Crying [Unknown]
  - Tremor [Unknown]
  - Nightmare [Unknown]
  - Vomiting [Unknown]
  - Nausea [Unknown]
  - Dyslexia [Unknown]
  - Abdominal pain [Unknown]
  - Product dose omission issue [Unknown]
